FAERS Safety Report 5038191-4 (Version None)
Quarter: 2006Q2

REPORT INFORMATION
  Report Type: 
  Country: None (occurrence: None)
  Receive Date: 20060623
  Receipt Date: 20060609
  Transmission Date: 20061013
  Serious: Yes (Hospitalization)
  Sender: FDA-Public Use
  Company Number: 2006073908

PATIENT
  Sex: Male

DRUGS (1)
  1. SUTENT [Suspect]
     Indication: RENAL CELL CARCINOMA STAGE UNSPECIFIED
     Dosage: 50 MG (1 IN 1 D), ORAL
     Route: 048
     Dates: start: 20060513

REACTIONS (4)
  - ARTERIOSCLEROSIS [None]
  - GANGRENE [None]
  - PERIPHERAL VASCULAR DISORDER [None]
  - PROCEDURAL COMPLICATION [None]
